FAERS Safety Report 9257101 (Version 1)
Quarter: 2013Q1

REPORT INFORMATION
  Report Type: Spontaneous
  Country: US (occurrence: None)
  Receive Date: 20121212
  Receipt Date: 20121212
  Transmission Date: 20140127
  Serious: No
  Sender: FDA-Public Use
  Company Number: 1207USA002785

PATIENT
  Age: 45 Year
  Sex: Male

DRUGS (2)
  1. VICTRELIS [Suspect]
     Route: 048
     Dates: start: 20120606, end: 20120704
  2. REBETOL [Suspect]
     Route: 048
     Dates: start: 20120609, end: 20120627

REACTIONS (4)
  - Dysstasia [None]
  - Epistaxis [None]
  - Anaemia [None]
  - Influenza like illness [None]
